FAERS Safety Report 9067679 (Version 5)
Quarter: 2013Q2

REPORT INFORMATION
  Report Type: Spontaneous
  Country: CN (occurrence: CN)
  Receive Date: 20130128
  Receipt Date: 20130515
  Transmission Date: 20140414
  Serious: Yes (Other)
  Sender: FDA-Public Use
  Company Number: CN-PFIZER INC-2013033747

PATIENT
  Age: 21 Year
  Sex: Male

DRUGS (3)
  1. MORPHINE SULFATE [Suspect]
     Indication: PAIN
     Dosage: 90 MG, 2X/DAY
     Route: 048
     Dates: start: 20130116, end: 20130116
  2. OXYCONTIN [Suspect]
     Indication: PAIN
     Dosage: 40 MG, 2X/DAY
     Route: 048
     Dates: start: 20130116, end: 20130118
  3. OXYCODONE HYDROCHLORIDE W/PARACETAMOL [Concomitant]
     Dosage: UNK

REACTIONS (4)
  - Speech disorder [Recovered/Resolved]
  - Hallucination [Recovered/Resolved]
  - Confusional state [Recovered/Resolved]
  - Drug ineffective [Recovered/Resolved]
